FAERS Safety Report 7080544-7 (Version None)
Quarter: 2010Q4

REPORT INFORMATION
  Report Type: 
  Country: None (occurrence: None)
  Receive Date: 20101025
  Receipt Date: 20101012
  Transmission Date: 20110411
  Serious: Yes (Hospitalization)
  Sender: FDA-Public Use
  Company Number: US-ACCORD-006425

PATIENT
  Age: 29 Year
  Sex: Female

DRUGS (1)
  1. TOPIRAMATE [Suspect]
     Indication: MIGRAINE
     Dosage: 50.00-MG-2.00PER / -1.0DAYS

REACTIONS (4)
  - MYOCLONUS [None]
  - PARANOIA [None]
  - PSYCHOTIC DISORDER [None]
  - TARDIVE DYSKINESIA [None]
